FAERS Safety Report 18573497 (Version 1)
Quarter: 2020Q4

REPORT INFORMATION
  Report Type: Spontaneous
  Country: US (occurrence: US)
  Receive Date: 20201203
  Receipt Date: 20201203
  Transmission Date: 20210114
  Serious: No
  Sender: FDA-Public Use
  Company Number: NVSC2020US314502

PATIENT
  Age: 52 Year
  Sex: Female
  Weight: 58.06 kg

DRUGS (3)
  1. TERCONAZOLE. [Suspect]
     Active Substance: TERCONAZOLE
     Indication: FUNGAL INFECTION
     Dosage: 0.4% ONE APPLICATION FOR 7 NIGHTS
     Route: 065
  2. TRIAMCINOLONE ACETONIDE. [Suspect]
     Active Substance: TRIAMCINOLONE ACETONIDE
     Indication: PRODUCT USED FOR UNKNOWN INDICATION
     Dosage: UNK UNK, TID
     Route: 065
  3. PREMARIN [Suspect]
     Active Substance: ESTROGENS, CONJUGATED
     Indication: MENOPAUSE
     Dosage: 0.625 MG, Q2W (0.625 MG INSERT 0.5 G TWICE A WEEK)
     Route: 065
     Dates: start: 20201116, end: 20201119

REACTIONS (7)
  - Vulvovaginal swelling [Unknown]
  - Vulvovaginal pruritus [Unknown]
  - Hypersensitivity [Not Recovered/Not Resolved]
  - Dermatitis atopic [Unknown]
  - Dysuria [Unknown]
  - Pain [Unknown]
  - Vulvovaginal burning sensation [Unknown]

NARRATIVE: CASE EVENT DATE: 20201119
